FAERS Safety Report 8249322-7 (Version None)
Quarter: 2012Q1

REPORT INFORMATION
  Report Type: 
  Country: None (occurrence: None)
  Receive Date: 20120322
  Receipt Date: 20120314
  Transmission Date: 20120608
  Serious: Yes (Other)
  Sender: FDA-Public Use
  Company Number: 2011029249

PATIENT
  Age: 50 Year
  Sex: Female
  Weight: 63.5036 kg

DRUGS (9)
  1. CLARITIN [Concomitant]
  2. PLAQUENIL [Concomitant]
  3. SUDAFED 12 HOUR [Concomitant]
  4. HIZENTRA [Suspect]
     Indication: IMMUNODEFICIENCY COMMON VARIABLE
     Dosage: (10 G 1X/WEEK, INFUSED 50ML VIA 2-4 SITES OVER 1.5-2 HOURS SUBCUTANEOUS), (2 GM 10 ML VIAL SUBCUTANE
     Route: 058
     Dates: start: 20110810, end: 20110810
  5. HIZENTRA [Suspect]
     Indication: IMMUNODEFICIENCY COMMON VARIABLE
     Dosage: (10 G 1X/WEEK, INFUSED 50ML VIA 2-4 SITES OVER 1.5-2 HOURS SUBCUTANEOUS), (2 GM 10 ML VIAL SUBCUTANE
     Route: 058
     Dates: start: 20110810, end: 20110810
  6. HIZENTRA [Suspect]
     Indication: IMMUNODEFICIENCY COMMON VARIABLE
     Dosage: (10 G 1X/WEEK, INFUSED 50ML VIA 2-4 SITES OVER 1.5-2 HOURS SUBCUTANEOUS), (2 GM 10 ML VIAL SUBCUTANE
     Route: 058
     Dates: start: 20110208, end: 20110208
  7. HIZENTRA [Suspect]
     Indication: IMMUNODEFICIENCY COMMON VARIABLE
     Dosage: (10 G 1X/WEEK, INFUSED 50ML VIA 2-4 SITES OVER 1.5-2 HOURS SUBCUTANEOUS), (2 GM 10 ML VIAL SUBCUTANE
     Route: 058
     Dates: start: 20120229, end: 20120313
  8. HIZENTRA [Suspect]
     Indication: IMMUNODEFICIENCY COMMON VARIABLE
     Dosage: (10 G 1X/WEEK, INFUSED 50ML VIA 2-4 SITES OVER 1.5-2 HOURS SUBCUTANEOUS), (2 GM 10 ML VIAL SUBCUTANE
     Route: 058
     Dates: start: 20110523
  9. HIZENTRA [Suspect]
     Indication: IMMUNODEFICIENCY COMMON VARIABLE
     Dosage: (10 G 1X/WEEK, INFUSED 50ML VIA 2-4 SITES OVER 1.5-2 HOURS SUBCUTANEOUS), (2 GM 10 ML VIAL SUBCUTANE
     Route: 058
     Dates: start: 20110523

REACTIONS (4)
  - BRONCHITIS [None]
  - SINUSITIS [None]
  - PNEUMONIA [None]
  - UPPER RESPIRATORY TRACT INFECTION [None]
